FAERS Safety Report 4935194-2 (Version None)
Quarter: 2006Q1

REPORT INFORMATION
  Report Type: 
  Country: None (occurrence: None)
  Receive Date: 20060302
  Receipt Date: 20060221
  Transmission Date: 20060701
  Serious: Yes (Hospitalization)
  Sender: FDA-Public Use
  Company Number: 163-20785-06020560

PATIENT
  Age: 55 Year
  Sex: Male

DRUGS (1)
  1. THALOMID [Suspect]
     Dosage: DAILY, ORAL
     Route: 048
     Dates: start: 20040101, end: 20050901

REACTIONS (2)
  - BLOOD CREATINE INCREASED [None]
  - VISION BLURRED [None]
